FAERS Safety Report 5168412-9 (Version None)
Quarter: 2006Q4

REPORT INFORMATION
  Report Type: 
  Country: None (occurrence: None)
  Receive Date: 20061201
  Receipt Date: 20060727
  Transmission Date: 20070319
  Serious: No
  Sender: FDA-Public Use
  Company Number: 2006089075

PATIENT
  Age: 12 Year
  Sex: Female
  Weight: 31 kg

DRUGS (7)
  1. SILDENAFIL CITRATE [Suspect]
     Indication: PULMONARY HYPERTENSION
     Dosage: 25 MG (8.33 MG, 3 IN 1 D), ORAL
     Route: 048
     Dates: start: 20050331
  2. WARFARIN SODIUM [Concomitant]
  3. OXYGEN (OXYGEN) [Concomitant]
  4. LASIX [Concomitant]
  5. ENALAPRIL MALEATE [Concomitant]
  6. DIGOXIN [Concomitant]
  7. EPOPROSTENOL SODIUM [Concomitant]

REACTIONS (2)
  - HEADACHE [None]
  - PULMONARY ARTERIAL PRESSURE INCREASED [None]
